FAERS Safety Report 5635887-8 (Version None)
Quarter: 2008Q1

REPORT INFORMATION
  Report Type: 
  Country: None (occurrence: None)
  Receive Date: 20080221
  Receipt Date: 20080207
  Transmission Date: 20080703
  Serious: Yes (Other)
  Sender: FDA-Public Use
  Company Number: 2008S1002047

PATIENT
  Age: 64 Year
  Sex: Female

DRUGS (2)
  1. WARFARIN SODIUM [Suspect]
     Indication: ANTICOAGULANT THERAPY
     Dosage: 3 MG; DAILY, 4 MG; DAILY, 6 MG; DAILY, 6 MG; DAILY
  2. AMIODARONE HCL [Concomitant]

REACTIONS (5)
  - ATRIAL FIBRILLATION [None]
  - DIARRHOEA [None]
  - DRUG INTERACTION [None]
  - INTERNATIONAL NORMALISED RATIO INCREASED [None]
  - VOMITING [None]
